FAERS Safety Report 15066006 (Version 8)
Quarter: 2018Q3

REPORT INFORMATION
  Report Type: Report from Study
  Country: CA (occurrence: CA)
  Receive Date: 20180626
  Receipt Date: 20180910
  Transmission Date: 20181010
  Serious: Yes (Hospitalization)
  Sender: FDA-Public Use
  Company Number: CA-ROCHE-2140097

PATIENT
  Age: 41 Year
  Sex: Male
  Weight: 86 kg

DRUGS (28)
  1. PREDNISONE. [Concomitant]
     Active Substance: PREDNISONE
     Indication: FACIAL PARALYSIS
     Route: 065
     Dates: start: 20180612
  2. PLACEBO [Suspect]
     Active Substance: UNSPECIFIED INGREDIENT
     Dosage: WEEK 24 (KIT NUMBER: 402914)?SUBSEQUENT DOSES RECEIVED ON 03/MAY/2013 (WEEK 48, KIT NUMBER: 407826)
     Route: 042
     Dates: start: 20121114
  3. MODAFINIL. [Concomitant]
     Active Substance: MODAFINIL
     Route: 065
     Dates: start: 20130513, end: 20130708
  4. VITAMIN B12 [Concomitant]
     Active Substance: CYANOCOBALAMIN
     Route: 065
     Dates: start: 20170116
  5. INTERFERON BETA?1A [Suspect]
     Active Substance: INTERFERON BETA-1A
     Dosage: MOST RECENT DOSE PRIOR TO SAE ON 28/APR/2014.
     Route: 058
     Dates: start: 20140331
  6. VITAMIN C [Concomitant]
     Active Substance: ASCORBIC ACID
     Route: 065
     Dates: start: 20130120
  7. MODAFINIL. [Concomitant]
     Active Substance: MODAFINIL
     Route: 065
     Dates: start: 20130709
  8. VALPROIC ACID. [Concomitant]
     Active Substance: VALPROIC ACID
     Route: 065
     Dates: start: 20140429, end: 20140506
  9. FRAGMIN [Concomitant]
     Active Substance: DALTEPARIN SODIUM
     Route: 065
     Dates: start: 20180612, end: 20180614
  10. INTERFERON BETA?1A [Suspect]
     Active Substance: INTERFERON BETA-1A
     Indication: RELAPSING-REMITTING MULTIPLE SCLEROSIS
     Route: 058
     Dates: start: 20120528
  11. OCRELIZUMAB. [Suspect]
     Active Substance: OCRELIZUMAB
     Dosage: OLE WEEK 24 (KIT NUMBER: 1128193)?SUBSEQUENT DOSE RECEIVED ON 09/APR/2015 (KIT NUMBER: 1147704), 24/
     Route: 042
     Dates: start: 20141014
  12. VALPROIC ACID. [Concomitant]
     Active Substance: VALPROIC ACID
     Route: 065
     Dates: start: 20160714
  13. NORMAL SALINE [Concomitant]
     Active Substance: SODIUM CHLORIDE
     Route: 065
     Dates: start: 20180612, end: 20180614
  14. AMITRIPTYLINE [Concomitant]
     Active Substance: AMITRIPTYLINE
     Route: 065
     Dates: start: 20180614, end: 20180618
  15. BENADRYL [Concomitant]
     Active Substance: DIPHENHYDRAMINE HYDROCHLORIDE
     Dosage: WEEK 1?SUBSEQUENT DOSES RECEIVED ON 11/JUN/2012 (WEEK 2), 13/NOV/2012 (WEEK 24), 03/MAY/2013 (WEEK 4
     Route: 065
     Dates: start: 20120528
  16. LIDOCAINE. [Concomitant]
     Active Substance: LIDOCAINE
     Indication: LUMBAR PUNCTURE
     Route: 065
     Dates: start: 20180611, end: 20180611
  17. AMITRIPTYLINE [Concomitant]
     Active Substance: AMITRIPTYLINE
     Indication: NEURALGIA
     Dosage: EVERY NIGHT AT BEDTIME (QHS) FOR 3 WEEKS
     Route: 065
     Dates: start: 20180612, end: 20180614
  18. TYLENOL [Concomitant]
     Active Substance: ACETAMINOPHEN
     Dosage: WEEK 1?SUBSEQUENT DOSES RECEIVED ON 11/JUN/2012 (WEEK 2), 23/JUN/2012, 13/NOV/2012 (WEEK 24), 03/MAY
     Route: 065
     Dates: start: 20120528
  19. ATIVAN [Concomitant]
     Active Substance: LORAZEPAM
     Route: 065
     Dates: start: 2010
  20. PLACEBO [Suspect]
     Active Substance: UNSPECIFIED INGREDIENT
     Indication: RELAPSING-REMITTING MULTIPLE SCLEROSIS
     Dosage: WEEK 1 (KIT NUMBER: 406578)?ADMINISTERED AS DUAL INFUSION ON DAY 1 AND DAY 15 OF CYCLE 1, FOLLOWED B
     Route: 042
     Dates: start: 20120528
  21. VALACYCLOVIR [Concomitant]
     Active Substance: VALACYCLOVIR HYDROCHLORIDE
     Indication: HERPES ZOSTER
     Route: 048
     Dates: start: 20180610, end: 20180612
  22. VALACYCLOVIR [Concomitant]
     Active Substance: VALACYCLOVIR HYDROCHLORIDE
     Route: 048
     Dates: start: 20180614, end: 20180621
  23. GRAVOL [Concomitant]
     Active Substance: DIMENHYDRINATE
     Indication: VOMITING
     Route: 065
     Dates: start: 20180611, end: 20180611
  24. OCRELIZUMAB. [Suspect]
     Active Substance: OCRELIZUMAB
     Indication: RELAPSING-REMITTING MULTIPLE SCLEROSIS
     Dosage: OLE WEEK 0 (KIT NUMBER: 1128193)?OCRELIZUMAB 600 MG INTRAVENOUS (IV) AS 300 MG INFUSIONS ON DAYS 1 A
     Route: 042
     Dates: start: 20140428
  25. IMOVANE [Concomitant]
     Active Substance: ZOPICLONE
     Route: 065
     Dates: start: 20180612, end: 20180614
  26. METHYLPREDNISOLONE. [Concomitant]
     Active Substance: METHYLPREDNISOLONE
     Dosage: WEEK 1?SUBSEQUENT DOSES RECEIVED ON 11/JUN/2012 (WEEK 2), 13/NOV/2012 (WEEK 24), 03/MAY/2013 (WEEK 4
     Route: 065
     Dates: start: 20120528
  27. VALPROIC ACID. [Concomitant]
     Active Substance: VALPROIC ACID
     Indication: DEPRESSION
     Route: 065
     Dates: start: 20130212, end: 20140428
  28. VALPROIC ACID. [Concomitant]
     Active Substance: VALPROIC ACID
     Route: 065
     Dates: start: 20171115, end: 20171215

REACTIONS (1)
  - Meningitis viral [Recovered/Resolved]

NARRATIVE: CASE EVENT DATE: 20180611
